FAERS Safety Report 16510361 (Version 1)
Quarter: 2019Q3

REPORT INFORMATION
  Report Type: Spontaneous
  Country: US (occurrence: US)
  Receive Date: 20190521
  Receipt Date: 20190521
  Transmission Date: 20191004
  Serious: No
  Sender: FDA-Public Use
  Company Number: None

PATIENT
  Age: 74 Year
  Sex: Female

DRUGS (1)
  1. LEDIP/SOFOSB TAB 90-400MG TAB(2X14) [Suspect]
     Active Substance: LEDIPASVIR\SOFOSBUVIR
     Indication: HEPATITIS C
     Route: 048
     Dates: start: 20190501

REACTIONS (5)
  - Diarrhoea [None]
  - Gastric infection [None]
  - Rhinorrhoea [None]
  - Oropharyngeal pain [None]
  - Gastroenteritis viral [None]

NARRATIVE: CASE EVENT DATE: 20190520
